FAERS Safety Report 4802930-5 (Version None)
Quarter: 2005Q4

REPORT INFORMATION
  Report Type: 
  Country: None (occurrence: None)
  Receive Date: 20051019
  Receipt Date: 20050516
  Transmission Date: 20060501
  Serious: Yes (Other)
  Sender: FDA-Public Use
  Company Number: PT-RB-1628-2005

PATIENT
  Age: 46 Year
  Sex: Female

DRUGS (2)
  1. BUPRENORPHINE HCL [Suspect]
     Indication: DRUG DEPENDENCE
     Route: 060
     Dates: start: 20040801, end: 20050325
  2. BUPRENORPHINE HCL [Suspect]
     Route: 060
     Dates: start: 20040801, end: 20050325

REACTIONS (2)
  - THYROID NEOPLASM [None]
  - WEIGHT DECREASED [None]
